FAERS Safety Report 7471893-9 (Version None)
Quarter: 2011Q2

REPORT INFORMATION
  Report Type: 
  Country: None (occurrence: None)
  Receive Date: 20110511
  Receipt Date: 20100623
  Transmission Date: 20111010
  Serious: No
  Sender: FDA-Public Use
  Company Number: A0868457A

PATIENT
  Sex: Female

DRUGS (3)
  1. ANTI-DIARRHEAL [Suspect]
  2. TYKERB [Suspect]
     Dosage: 250MG THREE TIMES PER DAY
     Route: 048
     Dates: start: 20100617
  3. AMBIEN [Suspect]

REACTIONS (4)
  - GAIT DISTURBANCE [None]
  - DIZZINESS [None]
  - DIARRHOEA [None]
  - FEELING ABNORMAL [None]
